FAERS Safety Report 7915552-4 (Version None)
Quarter: 2011Q4

REPORT INFORMATION
  Report Type: 
  Country: None (occurrence: None)
  Receive Date: 20111115
  Receipt Date: 20110825
  Transmission Date: 20120403
  Serious: No
  Sender: FDA-Public Use
  Company Number: US-BRISTOL-MYERS SQUIBB COMPANY-15983604

PATIENT
  Age: 69 Year
  Sex: Female

DRUGS (1)
  1. YERVOY [Suspect]
     Indication: METASTATIC MALIGNANT MELANOMA
     Dosage: LAST INFUSION ON 05AUG2011
     Route: 042
     Dates: end: 20110805

REACTIONS (1)
  - VULVOVAGINAL PRURITUS [None]
